FAERS Safety Report 21118783 (Version 1)
Quarter: 2022Q3

REPORT INFORMATION
  Report Type: Spontaneous
  Country: US (occurrence: None)
  Receive Date: 20220721
  Receipt Date: 20220721
  Transmission Date: 20221027
  Serious: No
  Sender: FDA-Public Use
  Company Number: None

PATIENT
  Age: 64 Year
  Sex: Male
  Weight: 106 kg

DRUGS (3)
  1. PAXLOVID [Suspect]
     Active Substance: NIRMATRELVIR\RITONAVIR
     Indication: COVID-19
     Dosage: FREQUENCY : TWICE A DAY;?
     Route: 048
     Dates: start: 20220719, end: 20220721
  2. LISINOPRIL [Concomitant]
     Active Substance: LISINOPRIL
  3. testosterone IM [Concomitant]

REACTIONS (5)
  - Burning sensation [None]
  - Urine output decreased [None]
  - Pollakiuria [None]
  - Abnormal dreams [None]
  - Faeces pale [None]

NARRATIVE: CASE EVENT DATE: 20220721
